FAERS Safety Report 6153698-4 (Version None)
Quarter: 2009Q2

REPORT INFORMATION
  Report Type: 
  Country: None (occurrence: None)
  Receive Date: 20090410
  Receipt Date: 20090330
  Transmission Date: 20091009
  Serious: Yes (Other)
  Sender: FDA-Public Use
  Company Number: CHPA2009US08226

PATIENT
  Age: 22 Year
  Sex: Male
  Weight: 77.1 kg

DRUGS (1)
  1. NODOZ (NCH) (CAFFEINE) CAPLET [Suspect]
     Indication: SOMNOLENCE
     Dosage: 1-2 DF, QD, VIA FALSA
     Dates: start: 20090330, end: 20090330

REACTIONS (4)
  - DRUG ABUSE [None]
  - FEELING ABNORMAL [None]
  - INCORRECT ROUTE OF DRUG ADMINISTRATION [None]
  - WRONG TECHNIQUE IN DRUG USAGE PROCESS [None]
